FAERS Safety Report 6055174-6 (Version None)
Quarter: 2009Q1

REPORT INFORMATION
  Report Type: 
  Country: None (occurrence: None)
  Receive Date: 20090122
  Receipt Date: 20090113
  Transmission Date: 20090719
  Serious: Yes (Other)
  Sender: FDA-Public Use
  Company Number: CHPA2009US00654

PATIENT
  Age: 87 Year
  Sex: Male

DRUGS (1)
  1. BENEFIBER W /WHEAT DEXTRIN POWER [Suspect]
     Indication: NUTRITIONAL SUPPORT
     Dosage: 1 TSP, TID, ORAL
     Route: 048

REACTIONS (2)
  - DIARRHOEA [None]
  - STENT PLACEMENT [None]
